FAERS Safety Report 25386270 (Version 1)
Quarter: 2025Q2

REPORT INFORMATION
  Report Type: Spontaneous
  Country: US (occurrence: US)
  Receive Date: 20250602
  Receipt Date: 20250602
  Transmission Date: 20250716
  Serious: No
  Sender: ELI LILLY AND COMPANY
  Company Number: US-ELI_LILLY_AND_COMPANY-US202505003164

PATIENT
  Age: 23 Year
  Sex: Male

DRUGS (2)
  1. CYMBALTA [Interacting]
     Active Substance: DULOXETINE HYDROCHLORIDE
     Indication: Product used for unknown indication
     Dosage: 30 MG, DAILY
     Route: 065
  2. BIMEKIZUMAB [Interacting]
     Active Substance: BIMEKIZUMAB
     Indication: Hidradenitis
     Route: 065
     Dates: start: 202502

REACTIONS (8)
  - Hidradenitis [Unknown]
  - Eye movement disorder [Unknown]
  - Depression [Unknown]
  - Emotional disorder [Unknown]
  - Drug interaction [Unknown]
  - Drug level increased [Unknown]
  - Mood swings [Unknown]
  - Anxiety [Unknown]
